FAERS Safety Report 6439827-3 (Version None)
Quarter: 2009Q4

REPORT INFORMATION
  Report Type: 
  Country: None (occurrence: None)
  Receive Date: 20091113
  Receipt Date: 20091022
  Transmission Date: 20100525
  Serious: Yes (Other)
  Sender: FDA-Public Use
  Company Number: US-ASTRAZENECA-2009SE22272

PATIENT
  Age: 63 Year
  Sex: Female
  Weight: 65 kg

DRUGS (6)
  1. CRESTOR [Suspect]
     Indication: HYPERCHOLESTEROLAEMIA
     Route: 048
     Dates: start: 20070101
  2. CRESTOR [Suspect]
     Route: 048
     Dates: start: 20091001
  3. SELOZOK [Suspect]
     Indication: HYPERTENSION
     Route: 048
     Dates: start: 20040101, end: 20090601
  4. NEBILET [Concomitant]
     Indication: HYPERTENSION
  5. PURAN T4 [Concomitant]
     Indication: HYPOTHYROIDISM
     Dates: start: 20091001
  6. DIOVAN [Concomitant]
     Indication: HYPERTENSION
     Dates: start: 20000101

REACTIONS (1)
  - BLOOD CHOLESTEROL INCREASED [None]
